FAERS Safety Report 7079543-0 (Version None)
Quarter: 2010Q4

REPORT INFORMATION
  Report Type: 
  Country: None (occurrence: None)
  Receive Date: 20101102
  Receipt Date: 20101028
  Transmission Date: 20110411
  Serious: Yes (Death)
  Sender: FDA-Public Use
  Company Number: CO-ALLERGAN-1013918US

PATIENT
  Age: 46 Year
  Sex: Female

DRUGS (2)
  1. BOTOX [Suspect]
     Indication: SKIN WRINKLING
     Dosage: 38 UNITS, SINGLE
     Route: 030
     Dates: start: 20100818, end: 20100818
  2. TAMIXIFENO [Concomitant]

REACTIONS (7)
  - DIPLOPIA [None]
  - MENINGITIS ASEPTIC [None]
  - METASTATIC NEOPLASM [None]
  - MUSCLE SPASTICITY [None]
  - MUSCULAR WEAKNESS [None]
  - NYSTAGMUS [None]
  - PAIN [None]
